FAERS Safety Report 6447978-2 (Version None)
Quarter: 2009Q4

REPORT INFORMATION
  Report Type: 
  Country: None (occurrence: None)
  Receive Date: 20091117
  Receipt Date: 20091105
  Transmission Date: 20100525
  Serious: Yes (Hospitalization)
  Sender: FDA-Public Use
  Company Number: A-CH2009-28242

PATIENT
  Age: 71 Year
  Sex: Female
  Weight: 63 kg

DRUGS (13)
  1. TRACLEER [Suspect]
     Indication: SKIN ULCER
     Dosage: 125 MG, BID, ORAL; 62.5 MG, BID, ORAL
     Route: 048
     Dates: start: 20090801, end: 20090901
  2. TRACLEER [Suspect]
     Indication: SKIN ULCER
     Dosage: 125 MG, BID, ORAL; 62.5 MG, BID, ORAL
     Route: 048
     Dates: start: 20090901, end: 20090922
  3. MOTILIUM [Concomitant]
  4. NICARDIPINE HCL [Concomitant]
  5. RIVOTRIL (CLONAZEPAM) [Concomitant]
  6. NEXIUM [Concomitant]
  7. PREVISCAN (FLUINDIONE) [Concomitant]
  8. PREDNISONE [Concomitant]
  9. ATARAX (ALPRAZOLAM) [Concomitant]
  10. TARDYFERON (FERROUS SULFATE) [Concomitant]
  11. OROCAL D (3) (COLECALCIFEROL, CALCIUM CARBONATE) [Concomitant]
  12. ILOPROST [Concomitant]
  13. ZOLPIDEM TARTRATE [Concomitant]

REACTIONS (5)
  - ASTHENIA [None]
  - CYTOLYTIC HEPATITIS [None]
  - DRUG RASH WITH EOSINOPHILIA AND SYSTEMIC SYMPTOMS [None]
  - HEADACHE [None]
  - SYSTEMIC INFLAMMATORY RESPONSE SYNDROME [None]
